FAERS Safety Report 10007565 (Version 1)
Quarter: 2014Q1

REPORT INFORMATION
  Report Type: Spontaneous
  Country: IT (occurrence: IT)
  Receive Date: 20140313
  Receipt Date: 20140313
  Transmission Date: 20141002
  Serious: Yes (Hospitalization)
  Sender: FDA-Public Use
  Company Number: IT-BAYER-2014-035140

PATIENT
  Age: 90 Year
  Sex: Male

DRUGS (4)
  1. CARDIOASPIRIN [Suspect]
     Dosage: DAILY DOSE 100 MG
     Route: 048
     Dates: start: 20130101, end: 20140207
  2. CARDIOASPIRIN [Suspect]
  3. DILTIAZEM [Concomitant]
     Dosage: DAILY DOSE 60 MG
     Route: 048
  4. LANOXIN [Concomitant]
     Route: 048

REACTIONS (4)
  - Haematemesis [Unknown]
  - Hyperpyrexia [Unknown]
  - Melaena [Unknown]
  - Sepsis [Unknown]
